FAERS Safety Report 10365198 (Version 2)
Quarter: 2014Q3

REPORT INFORMATION
  Report Type: Spontaneous
  Country: GB (occurrence: GB)
  Receive Date: 20140806
  Receipt Date: 20140825
  Transmission Date: 20150326
  Serious: Yes (Other)
  Sender: FDA-Public Use
  Company Number: GB-009507513-1408GBR000864

PATIENT
  Age: 23 Year
  Sex: Female

DRUGS (5)
  1. LEVOTHYROXINE SODIUM. [Concomitant]
     Active Substance: LEVOTHYROXINE SODIUM
     Indication: HYPOTHYROIDISM
     Dosage: 125 MICROGRAM, QD
     Route: 048
     Dates: start: 20080801
  2. AMITRIPTYLINE HYDROCHLORIDE. [Concomitant]
     Active Substance: AMITRIPTYLINE HYDROCHLORIDE
     Indication: CYSTITIS INTERSTITIAL
     Dosage: 25 MG, QD
     Route: 048
     Dates: start: 20140415
  3. NEXPLANON [Suspect]
     Active Substance: ETONOGESTREL
     Dosage: 2ND IMPLANT
     Route: 059
     Dates: end: 20120209
  4. NEXPLANON [Suspect]
     Active Substance: ETONOGESTREL
     Indication: CONTRACEPTION
     Dosage: 3RD IMPLANT, EVERY 3 YEARS
     Route: 058
     Dates: start: 20120209
  5. NEXPLANON [Suspect]
     Active Substance: ETONOGESTREL
     Dosage: 1ST IMPLANT
     Route: 059

REACTIONS (5)
  - Amenorrhoea [Unknown]
  - Abortion spontaneous [Unknown]
  - Unintended pregnancy [Recovered/Resolved]
  - Swelling [Unknown]
  - Malaise [Unknown]

NARRATIVE: CASE EVENT DATE: 2014
